FAERS Safety Report 7434333-1 (Version None)
Quarter: 2011Q2

REPORT INFORMATION
  Report Type: 
  Country: None (occurrence: None)
  Receive Date: 20110425
  Receipt Date: 20110419
  Transmission Date: 20111010
  Serious: No
  Sender: FDA-Public Use
  Company Number: US-PFIZER INC-2011085624

PATIENT
  Sex: Female

DRUGS (2)
  1. ADVIL PM [Suspect]
     Dosage: UNK
  2. COMPAZINE [Suspect]
     Dosage: UNK

REACTIONS (7)
  - MUSCLE FATIGUE [None]
  - IRRITABILITY [None]
  - RESTLESSNESS [None]
  - DRUG HYPERSENSITIVITY [None]
  - HYPOAESTHESIA [None]
  - AGITATION [None]
  - PARAESTHESIA [None]
